FAERS Safety Report 9839562 (Version 1)
Quarter: 2014Q1

REPORT INFORMATION
  Report Type: Spontaneous
  Country: ES (occurrence: ES)
  Receive Date: 20140124
  Receipt Date: 20140124
  Transmission Date: 20141002
  Serious: Yes (Hospitalization)
  Sender: FDA-Public Use
  Company Number: ES-009507513-1401ESP008955

PATIENT
  Age: 84 Year
  Sex: Male

DRUGS (2)
  1. SINEMET PLUS 25/100 MG COMPRIMIDOS [Suspect]
     Indication: PARKINSON^S DISEASE
     Dosage: 0.5 DF, TID
     Route: 048
     Dates: start: 20131008
  2. RIVASTIGMINE [Suspect]
     Indication: COGNITIVE DISORDER
     Dosage: 4.6 G QD
     Route: 062
     Dates: start: 20131004

REACTIONS (1)
  - Depressed level of consciousness [Unknown]
